FAERS Safety Report 8832923 (Version 1)
Quarter: 2012Q4

REPORT INFORMATION
  Report Type: 
  Country: FR (occurrence: FR)
  Receive Date: 20121010
  Receipt Date: 20121010
  Transmission Date: 20130627
  Serious: Yes (Death)
  Sender: FDA-Public Use
  Company Number: FR-CUBIST-2012S1000801

PATIENT
  Age: 64 Year
  Sex: Male

DRUGS (17)
  1. CUBICIN [Suspect]
     Indication: ENTEROCOCCAL INFECTION
     Route: 065
  2. CUBICIN [Suspect]
     Indication: STAPHYLOCOCCAL INFECTION
     Route: 065
  3. VANCOMYCIN [Concomitant]
     Indication: ABDOMINAL ABSCESS
     Route: 065
  4. VANCOMYCIN [Concomitant]
     Indication: STAPHYLOCOCCAL ABSCESS
     Route: 065
  5. VANCOMYCIN [Concomitant]
     Indication: ENTEROCOCCAL INFECTION
     Route: 065
  6. VANCOMYCIN [Concomitant]
     Indication: PSEUDOMONAS INFECTION
     Route: 065
  7. PIPERACILLIN W/TAZOBACTAM [Concomitant]
     Indication: ABDOMINAL ABSCESS
     Route: 065
  8. PIPERACILLIN W/TAZOBACTAM [Concomitant]
     Indication: STAPHYLOCOCCAL ABSCESS
     Route: 065
  9. PIPERACILLIN W/TAZOBACTAM [Concomitant]
     Indication: ENTEROCOCCAL INFECTION
     Route: 065
  10. PIPERACILLIN W/TAZOBACTAM [Concomitant]
     Route: 065
  11. CEFTRIAXONE [Concomitant]
     Indication: SEPTIC SHOCK
     Route: 065
  12. METRONIDAZOLE [Concomitant]
     Indication: SEPTIC SHOCK
     Route: 065
  13. GENTAMICIN [Concomitant]
     Indication: SEPTIC SHOCK
     Route: 065
  14. HEPARIN [Concomitant]
     Indication: MESENTERIC VEIN THROMBOSIS
     Route: 065
  15. PLATELET [Concomitant]
     Indication: THROMBOCYTOPENIA
     Route: 065
  16. IMMUNOGLOBULIN [Concomitant]
     Indication: THROMBOCYTOPENIA
     Route: 042
  17. STEROIDS [Concomitant]
     Indication: THROMBOCYTOPENIA
     Route: 042

REACTIONS (6)
  - Autoimmune thrombocytopenia [Fatal]
  - Brain herniation [Fatal]
  - Cerebral haemorrhage [Fatal]
  - Coma [Fatal]
  - Hydrocephalus [Fatal]
  - Purpura [Unknown]
